FAERS Safety Report 6930023-X (Version None)
Quarter: 2010Q3

REPORT INFORMATION
  Report Type: 
  Country: None (occurrence: None)
  Receive Date: 20100813
  Receipt Date: 20100624
  Transmission Date: 20110219
  Serious: No
  Sender: FDA-Public Use
  Company Number: NXG-10-002

PATIENT
  Sex: Female

DRUGS (1)
  1. ASCOMP WITH CODEINE (50MG, 325MG, 30MG, 40MG) NEXGEN [Suspect]
     Indication: TENSION HEADACHE

REACTIONS (4)
  - ASTHENIA [None]
  - FATIGUE [None]
  - FEELING ABNORMAL [None]
  - MENTAL STATUS CHANGES [None]
